FAERS Safety Report 25196188 (Version 1)
Quarter: 2025Q2

REPORT INFORMATION
  Report Type: Spontaneous
  Country: MA (occurrence: MA)
  Receive Date: 20250415
  Receipt Date: 20250415
  Transmission Date: 20250717
  Serious: Yes (Death, Other)
  Sender: INSUD PHARMA
  Company Number: MA-INSUD PHARMA-2504MA02648

PATIENT

DRUGS (1)
  1. BETAMETHASONE [Suspect]
     Active Substance: BETAMETHASONE
     Indication: Dermatosis
     Route: 061

REACTIONS (29)
  - Adrenal insufficiency [Fatal]
  - Cushing^s syndrome [Unknown]
  - Dermatitis atopic [Unknown]
  - Dermatitis exfoliative generalised [Unknown]
  - Skin exfoliation [Unknown]
  - Skin oedema [Unknown]
  - Skin erosion [Unknown]
  - Infection [Unknown]
  - Fungal infection [Unknown]
  - Tinea infection [Unknown]
  - Metabolic disorder [Unknown]
  - Hypertension [Unknown]
  - Hyperglycaemia [Unknown]
  - Pruritus [Unknown]
  - Alopecia [Unknown]
  - Chills [Unknown]
  - Asthenia [Unknown]
  - Dry mouth [Unknown]
  - Dysuria [Unknown]
  - Menstruation irregular [Unknown]
  - Menstruation delayed [Unknown]
  - Otorrhoea [Unknown]
  - Poikiloderma [Unknown]
  - Central obesity [Unknown]
  - Skin striae [Unknown]
  - Amyotrophy [Unknown]
  - Lipohypertrophy [Unknown]
  - Intertrigo [Unknown]
  - Product use issue [Unknown]
